FAERS Safety Report 24999610 (Version 3)
Quarter: 2025Q1

REPORT INFORMATION
  Report Type: Spontaneous
  Country: US (occurrence: US)
  Receive Date: 20250222
  Receipt Date: 20250324
  Transmission Date: 20250408
  Serious: Yes (Hospitalization, Other)
  Sender: SANOFI AVENTIS
  Company Number: US-SA-2025SA048069

PATIENT
  Age: 40 Year
  Sex: Male

DRUGS (6)
  1. ALPROLIX [Suspect]
     Active Substance: EFTRENONACOG ALFA
     Indication: Factor IX deficiency
     Dosage: INFUSE 4500 UNITS (4050-4950) SLOW IV PUSH ONCE A WEEK AND EVERY 24-48 HOURS AS NEEDED
     Route: 042
     Dates: start: 202306
  2. ALPROLIX [Suspect]
     Active Substance: EFTRENONACOG ALFA
     Indication: Factor IX deficiency
     Dosage: INFUSE 4500 UNITS (4050-4950) SLOW IV PUSH ONCE A WEEK AND EVERY 24-48 HOURS AS NEEDED
     Route: 042
     Dates: start: 202306
  3. ALPROLIX [Suspect]
     Active Substance: EFTRENONACOG ALFA
     Route: 042
     Dates: start: 202306
  4. ALPROLIX [Suspect]
     Active Substance: EFTRENONACOG ALFA
     Route: 042
     Dates: start: 202306
  5. EPCLUSA [Concomitant]
     Active Substance: SOFOSBUVIR\VELPATASVIR
  6. HEMLIBRA [Concomitant]
     Active Substance: EMICIZUMAB-KXWH
     Indication: Prophylaxis

REACTIONS (3)
  - Pericardial effusion [Unknown]
  - Haemorrhage [Unknown]
  - Weight fluctuation [Unknown]

NARRATIVE: CASE EVENT DATE: 20250206
